FAERS Safety Report 8544185-4 (Version None)
Quarter: 2012Q3

REPORT INFORMATION
  Report Type: 
  Country: None (occurrence: None)
  Receive Date: 20120717
  Receipt Date: 20120702
  Transmission Date: 20120928
  Serious: Yes (Hospitalization, Other)
  Sender: FDA-Public Use
  Company Number: 2012-000516

PATIENT
  Age: 62 Year
  Sex: Female

DRUGS (26)
  1. TRICOR [Concomitant]
  2. AMOXICILLIN [Concomitant]
  3. MOMETASONE FUROATE [Concomitant]
  4. SKELAXIN [Concomitant]
  5. HYDROCODONE BITARTRATE W/IBUPROFEN (HYDROCODONE BITARTRATE, IBUPROFEN) [Concomitant]
  6. CALTRATE + D (CALCIUM CARBONATE, COLECALCIFEROL) [Concomitant]
  7. MEDROXOYPROGESTERONE (MEDROXYPROGESTERONE) [Concomitant]
  8. ACTONEL [Suspect]
     Indication: OSTEOPENIA
     Dosage: 35 MG, ONCE WEEKLY, ORAL
     Route: 048
     Dates: start: 20041110, end: 20080613
  9. ALENDRONATE SODIUM [Suspect]
     Indication: OSTEOPOROSIS
     Dosage: 70 MG ONCE WEEKLY, ORAL
     Route: 048
     Dates: start: 20080601, end: 20111001
  10. ZETIA [Concomitant]
  11. FLUTICASONE PROPIONATE [Concomitant]
  12. AZITHROMYCIN [Concomitant]
  13. CEFUROXIME [Concomitant]
  14. METOCLOPRAMIDE [Concomitant]
  15. CYMBALTA [Concomitant]
  16. KETOCONAZOLE [Concomitant]
  17. TRAMADOL HCL [Concomitant]
  18. ZYRTEC [Concomitant]
  19. ZOLOFT (SERTRLAINE HYDROCHLORIDE) [Concomitant]
  20. LYRICA [Concomitant]
  21. NABUMETONE [Concomitant]
  22. ACIPHEX [Concomitant]
  23. TAMIFLU [Concomitant]
  24. METHOCARBAMOL [Concomitant]
  25. PSEUDOVENT (GUAIFENESIN, PSEUDOEPHEDRINE HYDROCHLORIDE) [Concomitant]
  26. PREDNISONE TAB [Concomitant]

REACTIONS (9)
  - ARTHRALGIA [None]
  - FRACTURE NONUNION [None]
  - FEMUR FRACTURE [None]
  - PAIN IN EXTREMITY [None]
  - FALL [None]
  - VITAMIN D DEFICIENCY [None]
  - FOOT FRACTURE [None]
  - FRACTURE DELAYED UNION [None]
  - IMPAIRED HEALING [None]
